FAERS Safety Report 6607867-7 (Version None)
Quarter: 2010Q1

REPORT INFORMATION
  Report Type: 
  Country: None (occurrence: None)
  Receive Date: 20100301
  Receipt Date: 20100222
  Transmission Date: 20100710
  Serious: Yes (Death)
  Sender: FDA-Public Use
  Company Number: CHPA2010US03665

PATIENT
  Age: 45 Year
  Sex: Female

DRUGS (9)
  1. LORATADINE (NCH) [Suspect]
     Route: 048
  2. ETHANOL [Suspect]
     Route: 048
  3. OXYCODONE [Suspect]
     Route: 048
  4. DIAZEPAM [Suspect]
     Route: 048
  5. AMITRIPTYLINE HCL [Suspect]
     Route: 048
  6. CITALOPRAM HYDROBROMIDE [Suspect]
     Route: 048
  7. ATENOLOL [Suspect]
     Route: 048
  8. LISINOPRIL [Suspect]
     Route: 048
  9. FAMOTIDINE [Suspect]
     Route: 048

REACTIONS (1)
  - DEATH [None]
